FAERS Safety Report 12398823 (Version 2)
Quarter: 2016Q2

REPORT INFORMATION
  Report Type: Spontaneous
  Country: US (occurrence: US)
  Receive Date: 20160524
  Receipt Date: 20160531
  Transmission Date: 20160815
  Serious: Yes (Hospitalization)
  Sender: FDA-Public Use
  Company Number: US-PFIZER INC-2016268738

PATIENT
  Age: 62 Year
  Sex: Male
  Weight: 136.8 kg

DRUGS (7)
  1. CARVEDILOL. [Interacting]
     Active Substance: CARVEDILOL
     Dosage: UNK
  2. PROPANOLOL HCL [Interacting]
     Active Substance: PROPRANOLOL HYDROCHLORIDE
     Dosage: UNK
  3. EFFEXOR XR [Suspect]
     Active Substance: VENLAFAXINE HYDROCHLORIDE
     Indication: DEPRESSION
     Dosage: UNK, 1X/DAY
  4. WELLBUTRIN [Concomitant]
     Active Substance: BUPROPION HYDROCHLORIDE
     Indication: DEPRESSION
     Dosage: 1200 MG, UNK
  5. LAMOTRIGINE. [Concomitant]
     Active Substance: LAMOTRIGINE
     Dosage: UNK
  6. CYMBALTA [Concomitant]
     Active Substance: DULOXETINE HYDROCHLORIDE
     Dosage: UNK
  7. WELLBUTRIN [Concomitant]
     Active Substance: BUPROPION HYDROCHLORIDE
     Indication: MOOD SWINGS
     Dosage: 450 MG DAILY (300MG IN MORNING AND 150 IN EVENING)

REACTIONS (10)
  - Depression [Recovering/Resolving]
  - Malaise [Unknown]
  - Suicidal ideation [Recovering/Resolving]
  - Somnolence [Recovered/Resolved]
  - Appetite disorder [Not Recovered/Not Resolved]
  - Drug interaction [Unknown]
  - Blood pressure fluctuation [Not Recovered/Not Resolved]
  - Anorgasmia [Recovered/Resolved]
  - Compulsions [Unknown]
  - Weight decreased [Recovered/Resolved]
